FAERS Safety Report 17266660 (Version 1)
Quarter: 2020Q1

REPORT INFORMATION
  Report Type: Spontaneous
  Country: US (occurrence: US)
  Receive Date: 20200114
  Receipt Date: 20200114
  Transmission Date: 20200409
  Serious: Yes (Other)
  Sender: FDA-Public Use
  Company Number: NVSC2020US006038

PATIENT
  Age: 62 Year
  Sex: Female

DRUGS (1)
  1. ATORVASTATIN [Suspect]
     Active Substance: ATORVASTATIN
     Indication: PRODUCT USED FOR UNKNOWN INDICATION
     Dosage: 80 MG, QD
     Route: 065

REACTIONS (9)
  - Myopathy [Unknown]
  - Fall [Unknown]
  - Respiratory failure [Unknown]
  - Dysphonia [Unknown]
  - Blood creatine phosphokinase increased [Unknown]
  - Condition aggravated [Unknown]
  - Asthenia [Unknown]
  - Myalgia [Unknown]
  - Dysphagia [Unknown]
